FAERS Safety Report 8858940 (Version 1)
Quarter: 2012Q4

REPORT INFORMATION
  Report Type: 
  Country: JP (occurrence: JP)
  Receive Date: 20121024
  Receipt Date: 20121024
  Transmission Date: 20130627
  Serious: Yes (Other)
  Sender: FDA-Public Use
  Company Number: JP-009507513-1205USA00450

PATIENT
  Age: 62 Year
  Sex: Male

DRUGS (4)
  1. JANUVIA TABLETS 50MG [Suspect]
     Indication: DIABETES MELLITUS
     Dosage: 50 mg, qd
     Route: 048
     Dates: start: 20111212, end: 20120424
  2. LANTUS [Suspect]
     Indication: DIABETES MELLITUS
     Route: 058
  3. DIOVAN [Concomitant]
     Indication: HYPERTENSION
     Route: 048
  4. PEPCID [Concomitant]

REACTIONS (3)
  - Chronic myeloid leukaemia [Not Recovered/Not Resolved]
  - Hypoglycaemia [Unknown]
  - Loss of consciousness [Unknown]
